FAERS Safety Report 8917400 (Version 2)
Quarter: 2012Q4

REPORT INFORMATION
  Report Type: 
  Country: US (occurrence: US)
  Receive Date: 20121120
  Receipt Date: 20121204
  Transmission Date: 20130627
  Serious: Yes (Hospitalization)
  Sender: FDA-Public Use
  Company Number: US-PFIZER INC-2012287922

PATIENT
  Age: 63 Year
  Sex: Male
  Weight: 159 kg

DRUGS (5)
  1. CELEBREX [Suspect]
     Indication: RHEUMATOID ARTHRITIS
     Dosage: 200 mg,daily
  2. NORVASC [Suspect]
     Indication: BLOOD PRESSURE ABNORMAL
     Dosage: UNK
  3. NORVASC [Suspect]
     Dosage: 5 mg, daily
  4. NORVASC [Suspect]
     Dosage: UNK
  5. METFORMIN [Concomitant]
     Indication: DIABETES
     Dosage: 500 mg, 3x/day

REACTIONS (1)
  - Colon cancer [Recovered/Resolved]
